FAERS Safety Report 6301090-1 (Version None)
Quarter: 2009Q3

REPORT INFORMATION
  Report Type: 
  Country: None (occurrence: None)
  Receive Date: 20090807
  Receipt Date: 20090728
  Transmission Date: 20100115
  Serious: Yes (Other)
  Sender: FDA-Public Use
  Company Number: PHEH2009US04360

PATIENT
  Sex: Female
  Weight: 52.608 kg

DRUGS (2)
  1. EXJADE [Suspect]
     Indication: SICKLE CELL ANAEMIA
     Dosage: 1000 MG, QD
     Route: 048
     Dates: start: 20090312
  2. EXJADE [Suspect]
     Indication: IRON OVERLOAD
     Dosage: 1000 UNK, UNK
     Route: 048
     Dates: end: 20090504

REACTIONS (4)
  - DIZZINESS [None]
  - VASCULAR OCCLUSION [None]
  - VISION BLURRED [None]
  - VISUAL ACUITY REDUCED [None]
